FAERS Safety Report 8845258 (Version 1)
Quarter: 2012Q4

REPORT INFORMATION
  Report Type: Spontaneous
  Country: ES (occurrence: None)
  Receive Date: 20121015
  Receipt Date: 20121015
  Transmission Date: 20130627
  Serious: Yes (Hospitalization)
  Sender: FDA-Public Use
  Company Number: 2012AP003342

PATIENT
  Age: 76 Year
  Sex: Male

DRUGS (3)
  1. METFORMIN (METFORMIN) [Suspect]
     Indication: TYPE 2 DIABETES MELLITUS
  2. IBUPROFEN [Concomitant]
  3. VILDAGLIPTIN (VILDAGLIPTIN) [Concomitant]

REACTIONS (6)
  - Bundle branch block right [None]
  - Renal failure [None]
  - Hyperkalaemia [None]
  - Respiratory failure [None]
  - Haemodynamic instability [None]
  - Lactic acidosis [None]
